FAERS Safety Report 8302606-6 (Version None)
Quarter: 2012Q2

REPORT INFORMATION
  Report Type: 
  Country: None (occurrence: None)
  Receive Date: 20120420
  Receipt Date: 20120412
  Transmission Date: 20120825
  Serious: Yes (Other)
  Sender: FDA-Public Use
  Company Number: US-BAYER-2012-036596

PATIENT
  Age: 4 Year
  Sex: Female
  Weight: 18 kg

DRUGS (1)
  1. ASPIRIN [Suspect]
     Dosage: DOSE: MORE THAN 18 TABLETS
     Route: 048
     Dates: start: 20120401, end: 20120401

REACTIONS (1)
  - ANALGESIC DRUG LEVEL INCREASED [None]
